FAERS Safety Report 12492715 (Version 1)
Quarter: 2016Q2

REPORT INFORMATION
  Report Type: Spontaneous
  Country: US (occurrence: None)
  Receive Date: 20160622
  Receipt Date: 20160622
  Transmission Date: 20160815
  Serious: Yes (Hospitalization)
  Sender: FDA-Public Use
  Company Number: None

PATIENT
  Age: 66 Year
  Sex: Male

DRUGS (2)
  1. GEMCITABINE [Suspect]
     Active Substance: GEMCITABINE\GEMCITABINE HYDROCHLORIDE
     Indication: RENAL CANCER
     Dosage: 1000MG--}750MG--}500MG ONCE A WEEK FOR TWO IV
     Route: 042
     Dates: start: 20151109, end: 20160426
  2. SUTENT [Suspect]
     Active Substance: SUNITINIB MALATE
     Indication: RENAL CANCER
     Dosage: 25MG DAILY FOR TWO WEEKS PO
     Route: 048
     Dates: start: 20151130, end: 20160426

REACTIONS (3)
  - Renal injury [None]
  - Pyrexia [None]
  - Dyspnoea [None]

NARRATIVE: CASE EVENT DATE: 20160426
